FAERS Safety Report 4829171-X (Version None)
Quarter: 2005Q4

REPORT INFORMATION
  Report Type: 
  Country: None (occurrence: None)
  Receive Date: 20051027
  Receipt Date: 20041008
  Transmission Date: 20060501
  Serious: Yes (Hospitalization, Other)
  Sender: FDA-Public Use
  Company Number: HQWYE483820JAN04

PATIENT
  Age: 58 Year
  Sex: Female
  Weight: 68.1 kg

DRUGS (10)
  1. PREMARIN [Suspect]
     Indication: BLOOD OESTROGEN
     Dosage: 0.9 MG DAILY AND; ORAL
     Route: 048
     Dates: start: 19790101, end: 19990501
  2. ENALAPRIL [Concomitant]
  3. DETROL [Concomitant]
  4. RANITIDINE [Concomitant]
  5. BACLOFEN [Concomitant]
  6. HYTRIN [Concomitant]
  7. LIPITOR [Concomitant]
  8. METOPROLOL [Concomitant]
  9. DOLOBID [Concomitant]
  10. ZOLOFT [Concomitant]

REACTIONS (2)
  - BREAST CANCER [None]
  - BREAST DISCHARGE [None]
